FAERS Safety Report 14249879 (Version 1)
Quarter: 2017Q4

REPORT INFORMATION
  Report Type: Report from Study
  Country: JP (occurrence: JP)
  Receive Date: 20171205
  Receipt Date: 20171205
  Transmission Date: 20180321
  Serious: Yes (Death, Life-Threatening, Hospitalization)
  Sender: FDA-Public Use
  Company Number: JP-ACTELION-A-CH2017-153057

PATIENT
  Age: 84 Year
  Sex: Male

DRUGS (11)
  1. ADCIRCA [Concomitant]
     Active Substance: TADALAFIL
  2. RABEPRAZOLE SODIUM. [Concomitant]
     Active Substance: RABEPRAZOLE SODIUM
  3. PREDNISOLONE. [Concomitant]
     Active Substance: PREDNISOLONE
  4. DIART [Concomitant]
     Active Substance: AZOSEMIDE
  5. NIFEDIPINE. [Concomitant]
     Active Substance: NIFEDIPINE
  6. WARFARIN [Concomitant]
     Active Substance: WARFARIN
  7. FEBURIC [Concomitant]
     Active Substance: FEBUXOSTAT
  8. URSODEOXYCHOLIC ACID [Concomitant]
     Active Substance: URSODIOL
  9. OPSUMIT [Suspect]
     Active Substance: MACITENTAN
     Indication: PULMONARY ARTERIAL HYPERTENSION
     Dosage: 10 MG, QD
     Route: 048
     Dates: start: 20160819, end: 20161219
  10. ULTIBRO [Concomitant]
     Active Substance: GLYCOPYRRONIUM\INDACATEROL
  11. OXYGEN. [Concomitant]
     Active Substance: OXYGEN

REACTIONS (8)
  - Blood alkaline phosphatase increased [Recovering/Resolving]
  - Bile duct cancer [Not Recovered/Not Resolved]
  - Lung neoplasm malignant [Fatal]
  - Cholangitis [Recovering/Resolving]
  - Aspartate aminotransferase increased [Recovering/Resolving]
  - Blood bilirubin increased [Recovering/Resolving]
  - Alanine aminotransferase increased [Recovering/Resolving]
  - Gamma-glutamyltransferase increased [Recovering/Resolving]

NARRATIVE: CASE EVENT DATE: 20160904
